FAERS Safety Report 24738967 (Version 5)
Quarter: 2025Q1

REPORT INFORMATION
  Report Type: Report from Study
  Country: CO (occurrence: CO)
  Receive Date: 20241216
  Receipt Date: 20250204
  Transmission Date: 20250409
  Serious: Yes (Other)
  Sender: AMGEN
  Company Number: CO-AMGEN-COLSL2024189732

PATIENT
  Age: 16 Year
  Sex: Female

DRUGS (5)
  1. NPLATE [Suspect]
     Active Substance: ROMIPLOSTIM
     Indication: Immune thrombocytopenia
     Route: 058
     Dates: start: 20240731, end: 2024
  2. NPLATE [Suspect]
     Active Substance: ROMIPLOSTIM
     Route: 058
     Dates: start: 20240920, end: 2024
  3. NPLATE [Suspect]
     Active Substance: ROMIPLOSTIM
     Dosage: 160 MICROGRAM, QWK
     Route: 058
     Dates: start: 2024, end: 2024
  4. NPLATE [Suspect]
     Active Substance: ROMIPLOSTIM
     Dosage: 160 MICROGRAM, QWK
     Route: 058
     Dates: start: 20241204
  5. NPLATE [Suspect]
     Active Substance: ROMIPLOSTIM
     Route: 058
     Dates: end: 20241204

REACTIONS (3)
  - Thrombocytosis [Recovered/Resolved]
  - Thrombocytopenia [Not Recovered/Not Resolved]
  - Influenza [Unknown]

NARRATIVE: CASE EVENT DATE: 20250103
